FAERS Safety Report 4349084-X (Version None)
Quarter: 2004Q2

REPORT INFORMATION
  Report Type: 
  Country: None (occurrence: None)
  Receive Date: 20040423
  Receipt Date: 20040416
  Transmission Date: 20050107
  Serious: Yes (Death, Other)
  Sender: FDA-Public Use
  Company Number: BE-SHR-03-016701

PATIENT
  Age: 64 Year
  Sex: Female

DRUGS (3)
  1. FLUDARA [Suspect]
     Indication: ALLOGENIC BONE MARROW TRANSPLANTATION THERAPY
     Dosage: 30 MG/M2/D
     Dates: start: 20030917, end: 20030920
  2. ATG-FRESENIUS (ANTITHYMOCYTE IMMUNOGLOBULIN) [Concomitant]
  3. CYCLOPHOSPHAMIDE [Concomitant]

REACTIONS (3)
  - MALIGNANT NEOPLASM PROGRESSION [None]
  - MULTIPLE MYELOMA [None]
  - RENAL FAILURE [None]
